FAERS Safety Report 5919532-X (Version None)
Quarter: 2008Q3

REPORT INFORMATION
  Report Type: 
  Country: None (occurrence: None)
  Receive Date: 20080909
  Receipt Date: 20070918
  Transmission Date: 20090109
  Serious: Yes (Death, Hospitalization, Other)
  Sender: FDA-Public Use
  Company Number: 163-20785-07050206

PATIENT
  Age: 54 Year
  Sex: Male
  Weight: 72.5755 kg

DRUGS (15)
  1. THALOMID [Suspect]
     Indication: MULTIPLE MYELOMA
     Dosage: 100 MG, 1 IN 1 D, ORAL ; 100 MG, 1 IN 1 D, ORAL
     Route: 048
     Dates: start: 20050616, end: 20050601
  2. THALOMID [Suspect]
     Indication: MULTIPLE MYELOMA
     Dosage: 100 MG, 1 IN 1 D, ORAL ; 100 MG, 1 IN 1 D, ORAL
     Route: 048
     Dates: start: 20050628, end: 20070425
  3. NEUPOGEN [Concomitant]
  4. PROCRIT [Concomitant]
  5. FENTANYL-100 [Concomitant]
  6. HYDROMORPHONE HCL [Concomitant]
  7. ACYCLOVIR [Concomitant]
  8. OXYBUTYNIN CHLORIDE [Concomitant]
  9. FILGRASTIM (FILGRASTIM) [Concomitant]
  10. ALPRAZOLAM [Concomitant]
  11. MOXIFLOXACIN HCL [Concomitant]
  12. PIP/TAZO (PIP/TAZO) [Concomitant]
  13. VANCOMYCIN [Concomitant]
  14. REGLAN [Concomitant]
  15. DIPYRIDAMOLE [Concomitant]

REACTIONS (5)
  - FEBRILE NEUTROPENIA [None]
  - HAEMORRHAGE [None]
  - MALIGNANT NEOPLASM PROGRESSION [None]
  - MULTIPLE MYELOMA [None]
  - PANCYTOPENIA [None]
